FAERS Safety Report 13896290 (Version 1)
Quarter: 2017Q3

REPORT INFORMATION
  Report Type: Spontaneous
  Country: US (occurrence: None)
  Receive Date: 20170814
  Receipt Date: 20170814
  Transmission Date: 20171127
  Serious: No
  Sender: FDA-Public Use
  Company Number: None

PATIENT
  Age: 87 Year
  Sex: Male
  Weight: 78.47 kg

DRUGS (4)
  1. BENAZEPRIL [Concomitant]
     Active Substance: BENAZEPRIL HYDROCHLORIDE
  2. PACEMAKER [Concomitant]
  3. WARFARIN [Concomitant]
     Active Substance: WARFARIN
  4. XARELTO [Suspect]
     Active Substance: RIVAROXABAN
     Indication: DEEP VEIN THROMBOSIS
     Route: 048
     Dates: start: 20170717, end: 20170719

REACTIONS (1)
  - Hallucination [None]

NARRATIVE: CASE EVENT DATE: 20170717
